FAERS Safety Report 10024220 (Version 2)
Quarter: 2014Q1

REPORT INFORMATION
  Report Type: Spontaneous
  Country: US (occurrence: US)
  Receive Date: 20140320
  Receipt Date: 20140320
  Transmission Date: 20141002
  Serious: Yes (Disabling)
  Sender: FDA-Public Use
  Company Number: US-GE HEALTHCARE MEDICAL DIAGNOSTICS-OSCN-PR-0809S-0528

PATIENT
  Age: 35 Year
  Sex: Male

DRUGS (3)
  1. OMNISCAN [Suspect]
     Indication: ABSCESS
     Dates: start: 20051116, end: 20051116
  2. GADOLINIUM (UNSPECIFIED) [Suspect]
     Indication: PITUITARY TUMOUR
     Dates: start: 20010509, end: 20010509
  3. EPOGEN [Concomitant]

REACTIONS (1)
  - Nephrogenic systemic fibrosis [Not Recovered/Not Resolved]
